FAERS Safety Report 9955200 (Version 2)
Quarter: 2014Q1

REPORT INFORMATION
  Report Type: Report from Study
  Country: US (occurrence: US)
  Receive Date: 20140304
  Receipt Date: 20140304
  Transmission Date: 20141002
  Serious: No
  Sender: FDA-Public Use
  Company Number: US-ABBVIE-13P-163-1040166-00

PATIENT
  Age: 44 Year
  Sex: Male

DRUGS (7)
  1. HUMIRA [Suspect]
     Indication: COLITIS ULCERATIVE
     Dosage: UNLESS STARTS TO HAVE COLITIS PAIN
     Dates: start: 20121130, end: 20130214
  2. HUMIRA [Suspect]
     Dates: start: 20130214
  3. METOPROLOL [Concomitant]
     Indication: BLOOD PRESSURE
  4. IMITREX [Concomitant]
     Indication: MIGRAINE
  5. UNKNOWN MEDICATION [Concomitant]
     Indication: BLOOD TESTOSTERONE DECREASED
     Route: 061
  6. MULTIPLE VITAMINS [Concomitant]
     Indication: PRODUCT USED FOR UNKNOWN INDICATION
  7. OXYCODONE [Concomitant]
     Indication: PAIN

REACTIONS (9)
  - Condition aggravated [Recovering/Resolving]
  - Arthralgia [Not Recovered/Not Resolved]
  - Injection site bruising [Not Recovered/Not Resolved]
  - Headache [Recovering/Resolving]
  - Influenza [Recovering/Resolving]
  - Injection site pruritus [Not Recovered/Not Resolved]
  - Injection site pain [Not Recovered/Not Resolved]
  - Fatigue [Recovering/Resolving]
  - Pain [Recovering/Resolving]
